FAERS Safety Report 14567208 (Version 1)
Quarter: 2018Q1

REPORT INFORMATION
  Report Type: Spontaneous
  Country: IT (occurrence: IT)
  Receive Date: 20180223
  Receipt Date: 20180223
  Transmission Date: 20180509
  Serious: Yes (Other)
  Sender: FDA-Public Use
  Company Number: IT-PFIZER INC-2018077674

PATIENT
  Age: 14 Year
  Sex: Male

DRUGS (8)
  1. TYGACIL [Suspect]
     Active Substance: TIGECYCLINE
     Dosage: 50 MG, 1X/DAY
     Route: 042
     Dates: start: 20170603, end: 20170622
  2. FUROSEMIDE. [Concomitant]
     Active Substance: FUROSEMIDE
     Dosage: 20 MG, 1X/DAY
     Route: 042
     Dates: start: 20170523, end: 20170626
  3. CIPROFLOXACIN. [Concomitant]
     Active Substance: CIPROFLOXACIN
     Dosage: 800 MG, 1X/DAY
     Dates: start: 20170617, end: 20170626
  4. CLINDAMYCIN. [Concomitant]
     Active Substance: CLINDAMYCIN
     Dosage: 300 MG, 1X/DAY
     Route: 042
     Dates: start: 20170520, end: 20170617
  5. URSODEOXYCHOLIC ACID [Concomitant]
     Active Substance: URSODIOL
     Route: 048
     Dates: start: 20170523, end: 20170626
  6. HEPARIN [Concomitant]
     Active Substance: HEPARIN SODIUM
     Dosage: 5000 DF, 1X/DAY
     Route: 042
     Dates: start: 20170523, end: 20170619
  7. CICLOSPORIN [Concomitant]
     Active Substance: CYCLOSPORINE
     Dosage: 75 MG, 1X/DAY
     Dates: start: 20170527, end: 20170620
  8. MERREM [Concomitant]
     Active Substance: MEROPENEM
     Route: 042
     Dates: start: 20170520, end: 20170617

REACTIONS (2)
  - Infusion related reaction [Recovered/Resolved]
  - Lip oedema [Recovered/Resolved]

NARRATIVE: CASE EVENT DATE: 20170622
